FAERS Safety Report 9111488 (Version 1)
Quarter: 2013Q1

REPORT INFORMATION
  Report Type: Spontaneous
  Country: US (occurrence: US)
  Receive Date: 20130219
  Receipt Date: 20130219
  Transmission Date: 20140127
  Serious: No
  Sender: FDA-Public Use
  Company Number: US-BRISTOL-MYERS SQUIBB COMPANY-16963522

PATIENT
  Age: 76 Year
  Sex: Female
  Weight: 91.61 kg

DRUGS (27)
  1. ABATACEPT SUBQ INJECTION 125MG/ML [Suspect]
     Indication: RHEUMATOID ARTHRITIS
     Dosage: DATE OF LAST INJECTION:   11SEP2012.DURATION:8 WEEKS
     Route: 058
  2. PREDNISONE [Concomitant]
  3. LASIX [Concomitant]
  4. BLOOD PRESSURE MEDICATION [Concomitant]
  5. CARDIZEM CD [Concomitant]
  6. SINGULAIR [Concomitant]
  7. SPIRONOLACTONE [Concomitant]
  8. POTASSIUM [Concomitant]
     Dosage: TABS
  9. JANUVIA [Concomitant]
  10. SYNTHROID [Concomitant]
  11. FOLIC ACID [Concomitant]
  12. NEXIUM [Concomitant]
  13. LIPITOR [Concomitant]
  14. METHOTREXATE [Concomitant]
  15. NEURONTIN [Concomitant]
  16. SPIRIVA [Concomitant]
  17. ALBUTEROL [Concomitant]
  18. ADVAIR [Concomitant]
  19. COQ10 [Concomitant]
  20. MULTIVITAMIN [Concomitant]
  21. VITAMIN B [Concomitant]
  22. GARLIC [Concomitant]
  23. FLAXSEED OIL [Concomitant]
  24. COD LIVER OIL [Concomitant]
  25. VITAMIN D3 [Concomitant]
  26. PROBIOTICA [Concomitant]
  27. EVENING PRIMROSE OIL [Concomitant]

REACTIONS (2)
  - Injection site reaction [Unknown]
  - Wound [Unknown]
